FAERS Safety Report 18543392 (Version 1)
Quarter: 2020Q4

REPORT INFORMATION
  Report Type: Report from Study
  Country: SK (occurrence: SK)
  Receive Date: 20201124
  Receipt Date: 20201124
  Transmission Date: 20210114
  Serious: Yes (Hospitalization)
  Sender: FDA-Public Use
  Company Number: SK-TAKEDA-2020TUS049550

PATIENT
  Age: 10 Year
  Sex: Male
  Weight: 27 kg

DRUGS (18)
  1. HUMAN NORMAL IMMUNOGLOBULIN; LIQUID [Suspect]
     Active Substance: HUMAN IMMUNOGLOBULIN G
     Dosage: UNK
     Dates: start: 20181113, end: 20181113
  2. HUMAN NORMAL IMMUNOGLOBULIN; LIQUID [Suspect]
     Active Substance: HUMAN IMMUNOGLOBULIN G
     Dosage: UNK
     Route: 065
     Dates: start: 20181204, end: 20181204
  3. ERDOMED [Concomitant]
     Active Substance: ERDOSTEINE
     Indication: CHRONIC SINUSITIS
     Dosage: 225 MILLIGRAM, BID
     Route: 048
     Dates: start: 2017
  4. PARALEN [PARACETAMOL] [Concomitant]
     Indication: GASTROENTERITIS
     Dosage: 0.5 UNK, BID
     Route: 048
     Dates: start: 20190224, end: 20190225
  5. BENELYTE [Concomitant]
     Indication: PHARYNGITIS
     Dosage: 500 UNK, QD
     Route: 042
     Dates: start: 20190319, end: 20190322
  6. HUMAN NORMAL IMMUNOGLOBULIN; LIQUID [Suspect]
     Active Substance: HUMAN IMMUNOGLOBULIN G
     Dosage: UNK UNK,
     Route: 065
     Dates: start: 20180807, end: 20180807
  7. HUMAN NORMAL IMMUNOGLOBULIN; LIQUID [Suspect]
     Active Substance: HUMAN IMMUNOGLOBULIN G
     Dosage: UNK
  8. HUMAN NORMAL IMMUNOGLOBULIN; LIQUID [Suspect]
     Active Substance: HUMAN IMMUNOGLOBULIN G
     Dosage: UNK UNK,
     Route: 065
     Dates: start: 20180823, end: 20180823
  9. HUMAN NORMAL IMMUNOGLOBULIN; LIQUID [Suspect]
     Active Substance: HUMAN IMMUNOGLOBULIN G
     Dosage: UNK
     Route: 065
     Dates: start: 20190611, end: 20190611
  10. HUMAN NORMAL IMMUNOGLOBULIN; LIQUID [Suspect]
     Active Substance: HUMAN IMMUNOGLOBULIN G
     Dosage: UNK
  11. AXETINE [CEFUROXIME AXETIL] [Concomitant]
     Active Substance: CEFUROXIME AXETIL
     Indication: PHARYNGITIS
     Dosage: 500 MILLIGRAM, TID
     Route: 042
     Dates: start: 20190319, end: 20190322
  12. ZINNAT [CEFUROXIME AXETIL] [Concomitant]
     Active Substance: CEFUROXIME
     Indication: PHARYNGITIS
     Dosage: 250 MILLIGRAM
     Route: 048
     Dates: start: 20190323, end: 20190330
  13. SMECTA [Concomitant]
     Active Substance: MONTMORILLONITE
     Indication: GASTROENTERITIS
     Dosage: 1 UNK, TID
     Route: 048
     Dates: start: 20190224, end: 20190225
  14. HUMAN NORMAL IMMUNOGLOBULIN; LIQUID [Suspect]
     Active Substance: HUMAN IMMUNOGLOBULIN G
     Indication: PRODUCT USED FOR UNKNOWN INDICATION
     Dosage: UNK UNK,
     Route: 058
     Dates: start: 20180730, end: 20180730
  15. HUMAN NORMAL IMMUNOGLOBULIN; LIQUID [Suspect]
     Active Substance: HUMAN IMMUNOGLOBULIN G
     Dosage: UNK
     Route: 065
     Dates: start: 20180911, end: 20180911
  16. HUMAN NORMAL IMMUNOGLOBULIN; LIQUID [Suspect]
     Active Substance: HUMAN IMMUNOGLOBULIN G
     Dosage: UNK
     Route: 065
     Dates: start: 20190226, end: 20190226
  17. HUMAN NORMAL IMMUNOGLOBULIN; LIQUID [Suspect]
     Active Substance: HUMAN IMMUNOGLOBULIN G
     Dosage: UNK
     Route: 065
     Dates: start: 20190819, end: 20190819
  18. AERIUS (DESLORATADINE) [Concomitant]
     Active Substance: DESLORATADINE
     Indication: CHRONIC SINUSITIS
     Dosage: 2.5 MILLIGRAM, QD
     Route: 048
     Dates: start: 2017

REACTIONS (1)
  - Pharyngitis [Recovered/Resolved]

NARRATIVE: CASE EVENT DATE: 20190319
